FAERS Safety Report 19696661 (Version 1)
Quarter: 2021Q3

REPORT INFORMATION
  Report Type: Spontaneous
  Country: US (occurrence: US)
  Receive Date: 20210812
  Receipt Date: 20210812
  Transmission Date: 20211014
  Serious: No
  Sender: FDA-Public Use
  Company Number: None

PATIENT
  Age: 44 Year
  Sex: Female

DRUGS (1)
  1. HUMIRA [Suspect]
     Active Substance: ADALIMUMAB
     Indication: PSORIATIC ARTHROPATHY
     Dosage: 40MG EVERY OTHER WEEK QD
     Dates: start: 202107, end: 202108

REACTIONS (2)
  - Cellulitis [None]
  - Hypersensitivity [None]

NARRATIVE: CASE EVENT DATE: 202108
